FAERS Safety Report 12520325 (Version 2)
Quarter: 2016Q3

REPORT INFORMATION
  Report Type: Spontaneous
  Country: US (occurrence: US)
  Receive Date: 20160701
  Receipt Date: 20160915
  Transmission Date: 20161109
  Serious: Yes (Other)
  Sender: FDA-Public Use
  Company Number: US-TEVA-673045ACC

PATIENT
  Sex: Female
  Weight: 106.24 kg

DRUGS (2)
  1. PARAGARD T 380A [Suspect]
     Active Substance: COPPER
     Dates: start: 20150428, end: 20160628
  2. PRENATAL VITAMINS [Concomitant]
     Active Substance: VITAMINS
     Route: 048
     Dates: start: 20160621

REACTIONS (2)
  - Exposure during pregnancy [Unknown]
  - Pregnancy on contraceptive [Unknown]
